FAERS Safety Report 14977577 (Version 2)
Quarter: 2018Q2

REPORT INFORMATION
  Report Type: Other
  Country: PL (occurrence: PL)
  Receive Date: 20180606
  Receipt Date: 20180629
  Transmission Date: 20180711
  Serious: Yes (Hospitalization)
  Sender: FDA-Public Use
  Company Number: PL-MERCK KGAA-2049045

PATIENT
  Age: 37 Year
  Sex: Female

DRUGS (23)
  1. ERYTHROPOIETIN [Suspect]
     Active Substance: ERYTHROPOIETIN
     Route: 058
  2. ALFACALCIDOL [Concomitant]
     Active Substance: ALFACALCIDOL
  3. METYLDOPA [Suspect]
     Active Substance: METHYLDOPA
     Route: 065
     Dates: start: 201503
  4. ERYTHROPOIETIN [Suspect]
     Active Substance: ERYTHROPOIETIN
     Route: 058
     Dates: start: 201508
  5. HEPARIN SODIUM. [Concomitant]
     Active Substance: HEPARIN SODIUM
  6. NOVOTHYROX [Suspect]
     Active Substance: LEVOTHYROXINE SODIUM
     Indication: HYPOTHYROIDISM
     Route: 065
     Dates: start: 201505
  7. SPIRAMYCIN [Suspect]
     Active Substance: SPIRAMYCIN
     Route: 065
     Dates: start: 201505
  8. ASCORBIC ACID W/FERROUS SULFATE(KENDURAL C) [Suspect]
     Active Substance: ASCORBIC ACID\FERROUS SULFATE
     Route: 048
  9. ALFACALCIDOL [Suspect]
     Active Substance: ALFACALCIDOL
     Route: 065
  10. EPOETIN BETA [Suspect]
     Active Substance: ERYTHROPOIETIN
     Route: 058
  11. FOLIC ACID. [Concomitant]
     Active Substance: FOLIC ACID
     Route: 048
     Dates: start: 201503
  12. ASCORBIC ACID W/CALCIUM GLUBIONATE [Suspect]
     Active Substance: ASCORBIC ACID\CALCIUM GLUBIONATE
     Route: 065
  13. TORASEMIDE [Suspect]
     Active Substance: TORSEMIDE
     Route: 065
  14. HEPARIN [Suspect]
     Active Substance: HEPARIN SODIUM
  15. COLECALCIFEROL W/RISEDRONIC ACID [Concomitant]
  16. ASCORBIC ACID W/CALCIUM GLUBIONATE(MACALVIT) [Concomitant]
     Dates: start: 201503
  17. ASCORBIC ACID W/FERROUS SULFATE(KENDURAL C) [Concomitant]
     Active Substance: ASCORBIC ACID\FERROUS SULFATE
     Dates: start: 201503
  18. SIMVASTATIN. [Suspect]
     Active Substance: SIMVASTATIN
     Route: 065
     Dates: end: 2015
  19. CEFUROXIME. [Suspect]
     Active Substance: CEFUROXIME
     Route: 065
     Dates: start: 201505
  20. ACETYLSALICYLIC ACID [Suspect]
     Active Substance: ASPIRIN
     Route: 048
     Dates: start: 201503
  21. IRON [Suspect]
     Active Substance: IRON
     Route: 042
     Dates: start: 201408
  22. IRON [Suspect]
     Active Substance: IRON
     Route: 042
     Dates: start: 201408
  23. FOLIC ACID. [Suspect]
     Active Substance: FOLIC ACID
     Route: 048

REACTIONS (8)
  - Haematocrit decreased [Unknown]
  - Oedema peripheral [Unknown]
  - Premature delivery [Recovered/Resolved]
  - Premature rupture of membranes [Unknown]
  - Contraindicated product administered [Unknown]
  - Blood albumin decreased [Unknown]
  - Maternal exposure during pregnancy [Recovered/Resolved]
  - Live birth [Recovered/Resolved]
